FAERS Safety Report 24391447 (Version 1)
Quarter: 2024Q4

REPORT INFORMATION
  Report Type: Spontaneous
  Country: US (occurrence: US)
  Receive Date: 20241003
  Receipt Date: 20241003
  Transmission Date: 20250115
  Serious: Yes (Life-Threatening, Other)
  Sender: CIPLA
  Company Number: US-CIPLA LTD.-2024US10791

PATIENT

DRUGS (5)
  1. TESTOSTERONE [Suspect]
     Active Substance: TESTOSTERONE
     Indication: Transgender hormonal therapy
     Dosage: UNK, 1 WEEK, HIGH-DOSE TESTOSTERONE INJECTIONS
     Route: 030
  2. NORETHINDRONE [Concomitant]
     Active Substance: NORETHINDRONE
     Indication: Hormone suppression therapy
     Dosage: UNK
     Route: 048
  3. NORETHINDRONE [Concomitant]
     Active Substance: NORETHINDRONE
     Indication: Uterine haemorrhage
  4. PROGESTERONE [Concomitant]
     Active Substance: PROGESTERONE
     Indication: Hormone suppression therapy
     Dosage: UNK, ONLY CONTRACEPTIVE
     Route: 048
  5. PROGESTERONE [Concomitant]
     Active Substance: PROGESTERONE
     Indication: Uterine haemorrhage

REACTIONS (2)
  - Haemorrhagic tumour necrosis [Recovered/Resolved]
  - Hepatic adenoma [Recovering/Resolving]
